FAERS Safety Report 19092497 (Version 2)
Quarter: 2021Q2

REPORT INFORMATION
  Report Type: Report from Study
  Country: US (occurrence: US)
  Receive Date: 20210405
  Receipt Date: 20210423
  Transmission Date: 20210717
  Serious: Yes (Hospitalization)
  Sender: FDA-Public Use
  Company Number: US-ROCHE-2802816

PATIENT
  Age: 68 Year
  Sex: Male
  Weight: 131.4 kg

DRUGS (9)
  1. CUPRIC OXIDE [Concomitant]
     Active Substance: CUPRIC OXIDE
  2. ATEZOLIZUMAB. [Suspect]
     Active Substance: ATEZOLIZUMAB
     Indication: HORMONE-REFRACTORY PROSTATE CANCER
     Dosage: ON 03/MAR/2021, MOST RECENT DOSE PRIOR TO SAE/AE ONSET WAS ADMINISTERED.
     Route: 041
     Dates: start: 20200826
  3. TOCOPHERYL ACETATE [Concomitant]
     Active Substance: .ALPHA.-TOCOPHEROL ACETATE
  4. SODIUM CHLORIDE. [Concomitant]
     Active Substance: SODIUM CHLORIDE
  5. XL184 [Suspect]
     Active Substance: CABOZANTINIB
     Indication: HORMONE-REFRACTORY PROSTATE CANCER
     Dosage: ON 23/MAR/2021, MOST RECENT DOSE PRIOR TO SAE/AE ONSET WAS ADMINISTERED.
     Route: 048
     Dates: start: 20200826
  6. MIRABEGRON [Concomitant]
     Active Substance: MIRABEGRON
  7. BETACAROTENE [Concomitant]
     Active Substance: .BETA.-CAROTENE
  8. TROSPIUM CHLORIDE. [Concomitant]
     Active Substance: TROSPIUM CHLORIDE
  9. ASCORBIC ACID. [Concomitant]
     Active Substance: ASCORBIC ACID

REACTIONS (1)
  - Colitis [Recovering/Resolving]

NARRATIVE: CASE EVENT DATE: 20210303
